FAERS Safety Report 6609845-0 (Version None)
Quarter: 2010Q1

REPORT INFORMATION
  Report Type: 
  Country: None (occurrence: None)
  Receive Date: 20100302
  Receipt Date: 20100218
  Transmission Date: 20100710
  Serious: Yes (Other)
  Sender: FDA-Public Use
  Company Number: PHHY2009AU46476

PATIENT
  Sex: Male

DRUGS (3)
  1. CLOZARIL [Suspect]
     Dosage: 175 MG, UNK
     Dates: start: 20060918
  2. CLOZARIL [Suspect]
     Dosage: 375 MG, UNK
     Dates: start: 20060908
  3. INTERFERON [Concomitant]
     Dosage: UNK
     Dates: start: 20091001

REACTIONS (1)
  - HEPATITIS C [None]
